FAERS Safety Report 21189406 (Version 1)
Quarter: 2022Q3

REPORT INFORMATION
  Report Type: Spontaneous
  Country: PL (occurrence: PL)
  Receive Date: 20220809
  Receipt Date: 20220809
  Transmission Date: 20221027
  Serious: Yes (Other)
  Sender: FDA-Public Use
  Company Number: None

PATIENT
  Age: 72 Year
  Sex: Male
  Weight: 73 kg

DRUGS (3)
  1. OXALIPLATIN [Suspect]
     Active Substance: OXALIPLATIN
     Indication: Product used for unknown indication
     Dosage: UNIT DOSE : 157.25 MG ,ADDITIONAL INFORMATION :THE DRUG HAS NOT BEEN USED IN THE PAST.
     Dates: start: 20210208, end: 20210208
  2. DOCETAXEL [Suspect]
     Active Substance: DOCETAXEL
     Indication: Product used for unknown indication
     Dosage: UNIT DOSE : 92.5 MG ,ADDITIONAL INFORMATION :THE DRUG HAS NOT BEEN USED IN THE PAST.
     Dates: start: 20210208, end: 20210208
  3. FLUOROURACIL [Suspect]
     Active Substance: FLUOROURACIL
     Indication: Product used for unknown indication
     Dosage: UNIT DOSE : 4810 MG   ,  DURATION : 1 DAY , ADDITIONAL INFORMATION :THE DRUG HAS NOT BEEN USED IN TH
     Dates: start: 20210208, end: 20210209

REACTIONS (1)
  - Neutropenia [Recovered/Resolved with Sequelae]

NARRATIVE: CASE EVENT DATE: 20210222
